FAERS Safety Report 9814906 (Version 1)
Quarter: 2014Q1

REPORT INFORMATION
  Report Type: Spontaneous
  Country: US (occurrence: US)
  Receive Date: 20140113
  Receipt Date: 20140113
  Transmission Date: 20141002
  Serious: No
  Sender: FDA-Public Use
  Company Number: US-PFIZER INC-2014006196

PATIENT
  Age: 19 Year
  Sex: Female
  Weight: 103 kg

DRUGS (1)
  1. DEPO-PROVERA [Suspect]
     Indication: CONTRACEPTION
     Dosage: UNK, ECVERY 3 MONTHS
     Dates: start: 201106, end: 201310

REACTIONS (2)
  - Drug dose omission [Unknown]
  - Menstrual disorder [Unknown]
